FAERS Safety Report 15883737 (Version 1)
Quarter: 2019Q1

REPORT INFORMATION
  Report Type: Spontaneous
  Country: CN (occurrence: CN)
  Receive Date: 20190129
  Receipt Date: 20190129
  Transmission Date: 20190417
  Serious: Yes (Other)
  Sender: FDA-Public Use
  Company Number: PHHY2019CN014931

PATIENT
  Age: 56 Year
  Sex: Female

DRUGS (2)
  1. TOPOTECAN [Suspect]
     Active Substance: TOPOTECAN HYDROCHLORIDE
     Indication: OVARIAN CANCER STAGE IV
     Dosage: 1.5 MG/M2, UNK
     Route: 065
  2. ENDOSTAR [Suspect]
     Active Substance: ENDOSTATIN
     Indication: OVARIAN CANCER STAGE IV
     Dosage: 7.5 MG/M2, ON DAYS 1-14, WHICH WAS REPEATED EVERY 3 WEEKS
     Route: 065

REACTIONS (2)
  - Malignant neoplasm progression [Unknown]
  - Ovarian cancer stage IV [Unknown]
